FAERS Safety Report 6768945-5 (Version None)
Quarter: 2010Q2

REPORT INFORMATION
  Report Type: 
  Country: None (occurrence: None)
  Receive Date: 20100615
  Receipt Date: 20100607
  Transmission Date: 20101027
  Serious: Yes (Other)
  Sender: FDA-Public Use
  Company Number: US-BIOGENIDEC-2010BI019266

PATIENT
  Age: 41 Year
  Sex: Male

DRUGS (8)
  1. TYSABRI [Suspect]
     Indication: MULTIPLE SCLEROSIS
     Route: 042
     Dates: start: 20080716, end: 20100204
  2. CARBATROL [Concomitant]
     Indication: EYE PAIN
  3. TRAMADOL HCL [Concomitant]
     Indication: EYE PAIN
     Dates: start: 20100101
  4. HYDROXYZINE [Concomitant]
     Indication: ABDOMINAL DISCOMFORT
  5. NAPROXEN [Concomitant]
     Indication: SWELLING
  6. FUROSEMIDE [Concomitant]
     Indication: FLUID RETENTION
  7. ALBUTEROL SULATE [Concomitant]
     Indication: PULMONARY FUNCTION TEST ABNORMAL
  8. MICARDIS [Concomitant]
     Indication: HYPERTENSION

REACTIONS (1)
  - CONVULSION [None]
